FAERS Safety Report 8573442-0 (Version None)
Quarter: 2012Q3

REPORT INFORMATION
  Report Type: 
  Country: None (occurrence: None)
  Receive Date: 20120806
  Receipt Date: 20120802
  Transmission Date: 20120928
  Serious: No
  Sender: FDA-Public Use
  Company Number: US-PFIZER INC-2012126124

PATIENT
  Sex: Female

DRUGS (2)
  1. EFFEXOR XR [Suspect]
     Dosage: UNK
  2. EFFEXOR XR [Suspect]
     Dosage: 37.5 MG

REACTIONS (6)
  - FATIGUE [None]
  - PYREXIA [None]
  - WITHDRAWAL SYNDROME [None]
  - ARTHRALGIA [None]
  - MYALGIA [None]
  - HEADACHE [None]
